FAERS Safety Report 14834988 (Version 6)
Quarter: 2020Q1

REPORT INFORMATION
  Report Type: Spontaneous
  Country: US (occurrence: US)
  Receive Date: 20180501
  Receipt Date: 20200124
  Transmission Date: 20200409
  Serious: Yes (Hospitalization)
  Sender: FDA-Public Use
  Company Number: US-VIFOR (INTERNATIONAL) INC.-VIT-2018-03957

PATIENT
  Age: 80 Year
  Sex: Male

DRUGS (19)
  1. VELTASSA [Suspect]
     Active Substance: PATIROMER
     Indication: PROTEINURIA
  2. METFORMIN HCL [Concomitant]
     Active Substance: METFORMIN HYDROCHLORIDE
  3. LISINOPRIL. [Concomitant]
     Active Substance: LISINOPRIL
  4. VELTASSA [Suspect]
     Active Substance: PATIROMER
     Indication: DIABETES MELLITUS
     Route: 048
     Dates: start: 20180127
  5. VELTASSA [Suspect]
     Active Substance: PATIROMER
     Indication: DIABETIC NEPHROPATHY
  6. AMLODIPINE BESYLATE. [Concomitant]
     Active Substance: AMLODIPINE BESYLATE
  7. FUROSEMIDE. [Concomitant]
     Active Substance: FUROSEMIDE
  8. GLIPIZIDE. [Concomitant]
     Active Substance: GLIPIZIDE
  9. SODIUM BICARBONATE. [Concomitant]
     Active Substance: SODIUM BICARBONATE
  10. VITAMIN D3 [Concomitant]
     Active Substance: CHOLECALCIFEROL
  11. VELTASSA [Suspect]
     Active Substance: PATIROMER
     Indication: MALAISE
  12. GENERLAC [Concomitant]
     Active Substance: LACTULOSE
  13. SIMVASTATIN. [Concomitant]
     Active Substance: SIMVASTATIN
  14. CARVEDILOL. [Concomitant]
     Active Substance: CARVEDILOL
  15. LANTUS SOLOSTAR [Concomitant]
     Active Substance: INSULIN GLARGINE
  16. VELTASSA [Suspect]
     Active Substance: PATIROMER
     Indication: CELLULITIS
  17. VELTASSA [Suspect]
     Active Substance: PATIROMER
     Indication: CHRONIC KIDNEY DISEASE
  18. GLUCOPHAGE [Concomitant]
     Active Substance: METFORMIN HYDROCHLORIDE
  19. JANUVIA [Concomitant]
     Active Substance: SITAGLIPTIN PHOSPHATE

REACTIONS (6)
  - Hospitalisation [Unknown]
  - Pneumonia [Unknown]
  - Off label use [Unknown]
  - Product dose omission [Unknown]
  - Hypoacusis [Unknown]
  - Treatment noncompliance [Unknown]

NARRATIVE: CASE EVENT DATE: 2018
